FAERS Safety Report 8533403-4 (Version None)
Quarter: 2012Q3

REPORT INFORMATION
  Report Type: 
  Country: None (occurrence: None)
  Receive Date: 20120724
  Receipt Date: 20120716
  Transmission Date: 20120928
  Serious: Yes (Hospitalization, Other)
  Sender: FDA-Public Use
  Company Number: US-INCYTE CORPORATION-2012IN000207

PATIENT
  Sex: Female

DRUGS (14)
  1. JAKAFI [Suspect]
     Indication: MYELOFIBROSIS
     Dosage: 20 MG, BID
     Route: 048
     Dates: start: 20120114, end: 20120201
  2. ASPIRIN [Concomitant]
     Dosage: 81 MG, QD
  3. PROTONIX [Concomitant]
     Dosage: 40 MG, QD
  4. NIACIN [Concomitant]
     Dosage: 500 MG, BID
  5. CALCIUM CARBONATE [Concomitant]
     Dosage: 500 MG, QD
  6. FOLIC ACID W/VITAMINS NOS [Suspect]
  7. JAKAFI [Suspect]
     Dosage: 10 MG, BID
     Route: 048
     Dates: start: 20120201
  8. SYNTHROID [Concomitant]
     Dosage: 0.1 MG, QD
  9. EXCEDRIN (MIGRAINE) [Concomitant]
     Indication: HEADACHE
     Dosage: UNK, PRN
  10. PANTOPRAZOLE [Concomitant]
  11. CELEBREX [Concomitant]
     Dosage: 200 MG, QD
  12. OXYCODONE HCL AND ACETAMINOPHEN [Concomitant]
     Indication: MUSCULOSKELETAL CHEST PAIN
     Dosage: 5/325 MG, 1 TAB PM
  13. LUNESTA [Concomitant]
     Dosage: 3 MG, QD (QHS)
  14. L-LYSINE [Concomitant]
     Dosage: 500 MG, QD

REACTIONS (2)
  - ANAEMIA [None]
  - URINARY TRACT INFECTION [None]
